FAERS Safety Report 8890327 (Version 1)
Quarter: 2012Q4

REPORT INFORMATION
  Report Type: Report from Study
  Country: DE (occurrence: DE)
  Receive Date: 20121106
  Receipt Date: 20121106
  Transmission Date: 20130627
  Serious: Yes (Other)
  Sender: FDA-Public Use
  Company Number: DE-009507513-1211DEU000003

PATIENT
  Age: 61 Year
  Sex: Male

DRUGS (9)
  1. PEGINTRON [Suspect]
     Indication: HEPATITIS C
     Dosage: 150 Microgram per kilogram, qw
     Route: 058
     Dates: start: 20120914
  2. BOCEPREVIR [Suspect]
     Indication: HEPATITIS C
  3. REBETOL [Suspect]
     Indication: HEPATITIS C
     Dosage: 600 mg, bid
     Route: 048
     Dates: start: 20120914
  4. METOHEXAL [Concomitant]
     Indication: HYPERTENSION
     Dosage: 6.25 mg, bid
     Route: 048
  5. SIMVASTATIN [Concomitant]
     Indication: BLOOD CHOLESTEROL
     Dosage: 5 mg, qd
     Route: 048
  6. RAMIPRIL [Concomitant]
     Indication: CORONARY ARTERY DISEASE
     Dosage: 5 mg, qd
     Route: 048
  7. SPIRONOLACTONE [Concomitant]
     Indication: HYPERTENSION
     Dosage: 25 mg, qd
     Route: 048
  8. PHENPROCOUMON [Concomitant]
     Indication: CORONARY ARTERY DISEASE
     Dosage: UNK, prn
     Route: 048
  9. PANTOZOL [Concomitant]
     Indication: GASTRIC DISORDER
     Dosage: UNK, prn
     Route: 048

REACTIONS (1)
  - Neutropenia [Unknown]
